FAERS Safety Report 9861397 (Version 2)
Quarter: 2014Q1

REPORT INFORMATION
  Report Type: Spontaneous
  Country: US (occurrence: US)
  Receive Date: 20140203
  Receipt Date: 20140214
  Transmission Date: 20141002
  Serious: Yes (Hospitalization)
  Sender: FDA-Public Use
  Company Number: US-ROCHE-1341713

PATIENT
  Sex: Female

DRUGS (30)
  1. XOLAIR [Suspect]
     Indication: PRODUCT USED FOR UNKNOWN INDICATION
     Route: 065
  2. ATROVENT [Concomitant]
  3. ASTEPRO [Concomitant]
  4. VERAMYST [Concomitant]
  5. SINGULAIR [Concomitant]
  6. SPIRIVA [Concomitant]
  7. SYMBICORT [Concomitant]
  8. PREDNISONE [Concomitant]
  9. XOPENEX HFA [Concomitant]
  10. METHOTREXATE [Concomitant]
  11. GAMMAGARD [Concomitant]
  12. GUAIFENESIN [Concomitant]
  13. BIAXIN [Concomitant]
  14. CETIRIZINE [Concomitant]
  15. SKELAXIN [Concomitant]
  16. MIRALAX [Concomitant]
  17. PAMELOR [Concomitant]
  18. PROTONIX (UNITED STATES) [Concomitant]
  19. FORTEO [Concomitant]
  20. CYMBALTA [Concomitant]
  21. OXYCONTIN [Concomitant]
  22. GABAPENTIN [Concomitant]
  23. TOPAMAX [Concomitant]
  24. XANAX [Concomitant]
  25. AMBIEN [Concomitant]
  26. INSULIN [Concomitant]
  27. HYDROCHLOROTHIAZIDE [Concomitant]
  28. FLAGYL [Concomitant]
  29. ZOFRAN [Concomitant]
  30. CLINDAMYCIN [Concomitant]

REACTIONS (2)
  - Asthma [Unknown]
  - Drug dose omission [Unknown]
